FAERS Safety Report 4642753-3 (Version None)
Quarter: 2005Q2

REPORT INFORMATION
  Report Type: 
  Country: None (occurrence: None)
  Receive Date: 20050420
  Receipt Date: 20050411
  Transmission Date: 20051028
  Serious: Yes (Hospitalization)
  Sender: FDA-Public Use
  Company Number: EWC050443448

PATIENT
  Age: 74 Year
  Sex: Female

DRUGS (2)
  1. FORTEO [Suspect]
     Indication: OSTEOPOROSIS
     Dosage: 20 UG DAY
     Dates: start: 20050404
  2. EUTIROX (LEVOTHYROXINE0 [Concomitant]

REACTIONS (5)
  - BACK PAIN [None]
  - ERYTHEMA [None]
  - HEADACHE [None]
  - NECK PAIN [None]
  - PARAESTHESIA [None]
